FAERS Safety Report 16902475 (Version 2)
Quarter: 2019Q4

REPORT INFORMATION
  Report Type: Spontaneous
  Country: US (occurrence: US)
  Receive Date: 20191010
  Receipt Date: 20191101
  Transmission Date: 20200122
  Serious: Yes (Other)
  Sender: FDA-Public Use
  Company Number: US-ROCHE-2350061

PATIENT
  Age: 51 Year
  Sex: Female

DRUGS (6)
  1. RUBRACA [Suspect]
     Active Substance: RUCAPARIB CAMSYLATE
     Dosage: 300 MG MORNING/ 600 MG EVENING
     Route: 048
     Dates: start: 20190618
  2. RUBRACA [Suspect]
     Active Substance: RUCAPARIB CAMSYLATE
     Route: 048
     Dates: start: 20190927
  3. RUBRACA [Suspect]
     Active Substance: RUCAPARIB CAMSYLATE
     Indication: OVARIAN CANCER
     Route: 048
     Dates: start: 20190601
  4. RUBRACA [Suspect]
     Active Substance: RUCAPARIB CAMSYLATE
     Route: 048
     Dates: start: 20190819
  5. AVASTIN [Suspect]
     Active Substance: BEVACIZUMAB
     Indication: PRODUCT USED FOR UNKNOWN INDICATION
     Route: 065
  6. RUBRACA [Suspect]
     Active Substance: RUCAPARIB CAMSYLATE
     Dosage: 300 MG IN AM, 600 MG IN PM
     Route: 048
     Dates: start: 20190524, end: 20190723

REACTIONS (21)
  - Bone marrow failure [Recovered/Resolved]
  - Sinusitis [Unknown]
  - Rash [Not Recovered/Not Resolved]
  - Back pain [Unknown]
  - Arthritis [Unknown]
  - Abdominal pain [Unknown]
  - Nasal congestion [Unknown]
  - Myalgia [Unknown]
  - Asthenia [Unknown]
  - Anaemia [Unknown]
  - Nausea [Unknown]
  - Musculoskeletal pain [Unknown]
  - Arthralgia [Unknown]
  - Renal function test abnormal [Unknown]
  - Pharyngeal ulceration [Recovering/Resolving]
  - Blister [Recovered/Resolved]
  - Productive cough [Unknown]
  - Vomiting [Unknown]
  - Fatigue [Not Recovered/Not Resolved]
  - Urinary tract infection [Unknown]
  - Somnolence [Unknown]

NARRATIVE: CASE EVENT DATE: 20190524
